FAERS Safety Report 8437722 (Version 3)
Quarter: 2013Q2

REPORT INFORMATION
  Report Type: Spontaneous
  Country: US (occurrence: None)
  Receive Date: 20120113
  Receipt Date: 20120713
  Transmission Date: 20140414
  Serious: Yes (Other)
  Sender: FDA-Public Use
  Company Number: PHEH2011US06531

PATIENT
  Age: 39 Year
  Sex: Female
  Weight: 48.1 kg

DRUGS (8)
  1. ILARIS [Suspect]
     Indication: URTICARIA THERMAL
     Dosage: 150 MG, Q8WEEK, SUBCUTANEOUS
     Route: 058
     Dates: start: 20101022, end: 20111019
  2. ASMANEX [Concomitant]
  3. VYVANSE [Concomitant]
  4. ZOLOFT [Concomitant]
  5. ZYRTEC [Concomitant]
  6. MIRENA [Concomitant]
  7. NAPROSYN [Concomitant]
  8. SINGULAIR (MONTELUKAST) [Concomitant]

REACTIONS (6)
  - WEIGHT INCREASED [None]
  - URTICARIA [None]
  - CHILLS [None]
  - EYE MOVEMENT DISORDER [None]
  - EAR INFECTION [None]
  - Hypersensitivity [None]
